FAERS Safety Report 4341485-9 (Version None)
Quarter: 2004Q2

REPORT INFORMATION
  Report Type: 
  Country: None (occurrence: None)
  Receive Date: 20040415
  Receipt Date: 20040402
  Transmission Date: 20050107
  Serious: Yes (Other)
  Sender: FDA-Public Use
  Company Number: 200403591

PATIENT
  Age: 37 Year
  Sex: Female

DRUGS (11)
  1. EXTRA STRENGTH TYLENOL [Suspect]
     Indication: MYALGIA
     Dosage: UNKNOWN; PO
     Route: 048
  2. CELEXA [Concomitant]
  3. ASPIRIN [Concomitant]
  4. ASACOL [Concomitant]
  5. CALCIUM [Concomitant]
  6. LEVOXYL [Concomitant]
  7. FOLGARD [Concomitant]
  8. POTASSIUM CHLORIDE [Concomitant]
  9. FERROUS SULFATE TAB [Concomitant]
  10. LOVENOX [Concomitant]
  11. PROGESTERONE VAGINAL SUPPOSITORY [Concomitant]

REACTIONS (7)
  - BLOOD POTASSIUM INCREASED [None]
  - DEHYDRATION [None]
  - DIZZINESS [None]
  - DRUG ABUSER [None]
  - INSOMNIA [None]
  - MALNUTRITION [None]
  - PANIC ATTACK [None]
